FAERS Safety Report 10187111 (Version 2)
Quarter: 2014Q3

REPORT INFORMATION
  Report Type: Report from Study
  Country: HU (occurrence: HU)
  Receive Date: 20140522
  Receipt Date: 20140715
  Transmission Date: 20150326
  Serious: Yes (Hospitalization, Other)
  Sender: FDA-Public Use
  Company Number: HU-ASTRAZENECA-2014SE35181

PATIENT
  Age: 61 Year
  Sex: Female

DRUGS (2)
  1. BRETARIS GENUAIR [Concomitant]
     Indication: CHRONIC OBSTRUCTIVE PULMONARY DISEASE
     Route: 055
  2. SYMBICORT [Suspect]
     Active Substance: BUDESONIDE\FORMOTEROL FUMARATE DIHYDRATE
     Indication: CHRONIC OBSTRUCTIVE PULMONARY DISEASE
     Dosage: 9/320 MCG TWO TIMES DAILY
     Route: 055

REACTIONS (4)
  - Gastrooesophageal reflux disease [Unknown]
  - Vocal cord thickening [Recovering/Resolving]
  - Laryngeal oedema [Recovering/Resolving]
  - Dysphonia [Recovering/Resolving]

NARRATIVE: CASE EVENT DATE: 201312
